FAERS Safety Report 5347851-7 (Version None)
Quarter: 2007Q2

REPORT INFORMATION
  Report Type: 
  Country: None (occurrence: None)
  Receive Date: 20070606
  Receipt Date: 20070525
  Transmission Date: 20071010
  Serious: Yes (Hospitalization)
  Sender: FDA-Public Use
  Company Number: FR-ROCHE-493084

PATIENT
  Age: 62 Year
  Sex: Female

DRUGS (13)
  1. GANCICLOVIR SODIUM [Suspect]
     Indication: GLIOMA
     Route: 042
     Dates: start: 20061118, end: 20061202
  2. CEREPRO [Suspect]
     Indication: GLIOMA
     Dosage: 1X 1012 VP; REGIMEN #1
     Route: 018
     Dates: start: 20061113, end: 20061113
  3. PRIMPERAN INJ [Concomitant]
  4. HEPT-A-MYL [Concomitant]
     Dates: start: 20061127
  5. ORBENIN CAP [Concomitant]
     Dates: start: 20061123
  6. NOROXIN [Concomitant]
     Dates: start: 20061121
  7. TAVANIC [Concomitant]
     Dates: start: 20061123
  8. OMEPRAZOLE [Concomitant]
     Dates: start: 20061102
  9. URBANYL [Concomitant]
     Dates: start: 20061102
  10. PARACETAMOL [Concomitant]
     Dates: start: 20061113
  11. ENOXAPARIN SODIUM [Concomitant]
     Dates: start: 20061118
  12. LACTULOSE [Concomitant]
     Dates: start: 20061120
  13. TEMOZOLOMIDE [Concomitant]
     Dates: start: 20061212, end: 20061214

REACTIONS (2)
  - HYDROCEPHALUS [None]
  - NORMAL PRESSURE HYDROCEPHALUS [None]
